FAERS Safety Report 8393686-0 (Version None)
Quarter: 2012Q2

REPORT INFORMATION
  Report Type: 
  Country: None (occurrence: None)
  Receive Date: 20120530
  Receipt Date: 20120521
  Transmission Date: 20120825
  Serious: No
  Sender: FDA-Public Use
  Company Number: US-BIOGENIDEC-2012BI017913

PATIENT
  Sex: Female

DRUGS (1)
  1. TYSABRI [Suspect]
     Indication: MULTIPLE SCLEROSIS
     Route: 042
     Dates: start: 20091023

REACTIONS (7)
  - STRESS [None]
  - MULTIPLE SCLEROSIS [None]
  - WHITE BLOOD CELL COUNT INCREASED [None]
  - NEPHROLITHIASIS [None]
  - PANIC ATTACK [None]
  - URINARY TRACT INFECTION [None]
  - BLOOD URINE PRESENT [None]
